FAERS Safety Report 19549100 (Version 1)
Quarter: 2021Q3

REPORT INFORMATION
  Report Type: Spontaneous
  Country: US (occurrence: US)
  Receive Date: 20210715
  Receipt Date: 20210715
  Transmission Date: 20211014
  Serious: No
  Sender: FDA-Public Use
  Company Number: None

PATIENT
  Age: 70 Year
  Sex: Female

DRUGS (2)
  1. CABOZANTINIB [Suspect]
     Active Substance: CABOZANTINIB
     Indication: RENAL CELL CARCINOMA
     Route: 048
     Dates: start: 20210528, end: 20210621
  2. NIVOLUMAB [Concomitant]
     Active Substance: NIVOLUMAB
     Dates: start: 20210528

REACTIONS (13)
  - Diarrhoea [None]
  - Faeces hard [None]
  - Dyschezia [None]
  - Rash vesicular [None]
  - Nausea [None]
  - Pruritus [None]
  - Burning sensation [None]
  - Fatigue [None]
  - Blister [None]
  - Bone pain [None]
  - Eyelid disorder [None]
  - Erythema of eyelid [None]
  - Stomatitis [None]

NARRATIVE: CASE EVENT DATE: 20210608
